FAERS Safety Report 16268854 (Version 1)
Quarter: 2019Q2

REPORT INFORMATION
  Report Type: Spontaneous
  Country: US (occurrence: US)
  Receive Date: 20190503
  Receipt Date: 20190503
  Transmission Date: 20190711
  Serious: Yes (Death, Other)
  Sender: FDA-Public Use
  Company Number: US-SAMSUNG BIOEPIS-SB-2019-10326

PATIENT
  Age: 70 Year
  Sex: Male

DRUGS (3)
  1. METHYLPREDNISONE [Concomitant]
     Active Substance: METHYLPREDNISOLONE
     Indication: MYOCARDITIS
     Route: 065
  2. NIVOLUMAB [Suspect]
     Active Substance: NIVOLUMAB
     Indication: PRODUCT USED FOR UNKNOWN INDICATION
     Dosage: UNKNOWN
     Route: 065
  3. INFLIXIMAB [Suspect]
     Active Substance: INFLIXIMAB
     Indication: MYOCARDITIS
     Dosage: UNKNOWN
     Route: 065

REACTIONS (4)
  - Varicella zoster virus infection [Unknown]
  - Off label use [Unknown]
  - Myocarditis [Fatal]
  - Multiple organ dysfunction syndrome [Fatal]
